FAERS Safety Report 18493502 (Version 11)
Quarter: 2023Q1

REPORT INFORMATION
  Report Type: Report from Study
  Country: US (occurrence: None)
  Receive Date: 20201112
  Receipt Date: 20230308
  Transmission Date: 20230417
  Serious: Yes (Hospitalization, Other)
  Sender: FDA-Public Use
  Company Number: US-ROCHE-2505357

PATIENT
  Age: 41 Year
  Sex: Male
  Weight: 84.6 kg

DRUGS (1)
  1. ATEZOLIZUMAB [Suspect]
     Active Substance: ATEZOLIZUMAB
     Indication: Alveolar soft part sarcoma
     Dosage: CYCLE = 21 DAYS OVER 60 MINUTES ON DAY 1?LAST ADMINISTERED ON 05/NOV/2019, 17/DEC/2019, 26/MAY/2020,
     Route: 042
     Dates: start: 20190511

REACTIONS (8)
  - Hemiparesis [Recovered/Resolved]
  - Brain oedema [Recovering/Resolving]
  - Lymphocyte count decreased [Recovered/Resolved]
  - Hyperglycaemia [Recovered/Resolved]
  - Radiation necrosis [Recovered/Resolved with Sequelae]
  - Vertigo [Recovered/Resolved]
  - Hyperthyroidism [Unknown]
  - Lymphopenia [Recovered/Resolved]

NARRATIVE: CASE EVENT DATE: 20191113
